FAERS Safety Report 21918902 (Version 1)
Quarter: 2023Q1

REPORT INFORMATION
  Report Type: Spontaneous
  Country: US (occurrence: None)
  Receive Date: 20230126
  Receipt Date: 20230126
  Transmission Date: 20230418
  Serious: Yes (Hospitalization)
  Sender: FDA-Public Use
  Company Number: None

PATIENT
  Age: 4 Year
  Sex: Male

DRUGS (1)
  1. NOVOSEVEN RT [Suspect]
     Active Substance: COAGULATION FACTOR VIIA RECOMBINANT HUMAN
     Indication: Factor IX deficiency
     Dosage: FREQUENCY : DAILY;?OTHER ROUTE : PORT;?
     Route: 050
     Dates: start: 20211130

REACTIONS (2)
  - Epistaxis [None]
  - Haemorrhage [None]

NARRATIVE: CASE EVENT DATE: 20230101
